FAERS Safety Report 12849289 (Version 1)
Quarter: 2016Q4

REPORT INFORMATION
  Report Type: Spontaneous
  Country: US (occurrence: US)
  Receive Date: 20161014
  Receipt Date: 20161014
  Transmission Date: 20170207
  Serious: Yes (Hospitalization, Other)
  Sender: FDA-Public Use
  Company Number: US-TEVA-702884USA

PATIENT
  Age: 56 Year
  Sex: Female

DRUGS (24)
  1. XANAX [Concomitant]
     Active Substance: ALPRAZOLAM
  2. PROMETRIUM [Concomitant]
     Active Substance: PROGESTERONE
  3. AZITHROMYCIN ANHYDROUS. [Concomitant]
     Active Substance: AZITHROMYCIN ANHYDROUS
  4. NUVIGIL [Concomitant]
     Active Substance: ARMODAFINIL
  5. PREDNISONE. [Concomitant]
     Active Substance: PREDNISONE
  6. PROZAC [Concomitant]
     Active Substance: FLUOXETINE HYDROCHLORIDE
  7. CARAFATE [Concomitant]
     Active Substance: SUCRALFATE
  8. CYMBALTA [Concomitant]
     Active Substance: DULOXETINE HYDROCHLORIDE
  9. GLUCOSAMINE [Concomitant]
     Active Substance: GLUCOSAMINE
  10. EXEMESTANE. [Concomitant]
     Active Substance: EXEMESTANE
  11. TOPIRAMATE. [Concomitant]
     Active Substance: TOPIRAMATE
  12. COPAXONE [Suspect]
     Active Substance: GLATIRAMER ACETATE
     Indication: MULTIPLE SCLEROSIS
     Dosage: 20 MILLIGRAM DAILY;
     Route: 058
     Dates: start: 20090905
  13. CYMBALTA [Concomitant]
     Active Substance: DULOXETINE HYDROCHLORIDE
  14. LETROZOLE. [Concomitant]
     Active Substance: LETROZOLE
  15. ZANTAC [Concomitant]
     Active Substance: RANITIDINE HYDROCHLORIDE
  16. ARICEPT [Concomitant]
     Active Substance: DONEPEZIL HYDROCHLORIDE
  17. PROZAC [Concomitant]
     Active Substance: FLUOXETINE HYDROCHLORIDE
  18. NEXIUM [Concomitant]
     Active Substance: ESOMEPRAZOLE MAGNESIUM
  19. LORAZEPAM. [Concomitant]
     Active Substance: LORAZEPAM
  20. GABAPENTIN. [Concomitant]
     Active Substance: GABAPENTIN
  21. VITAMIN D [Concomitant]
     Active Substance: CHOLECALCIFEROL
  22. FLUOXETINE [Concomitant]
     Active Substance: FLUOXETINE HYDROCHLORIDE
  23. AMOXICILLIN SODIUM W/CLAVULANATE POTASSIUM [Concomitant]
     Active Substance: AMOXICILLIN\CLAVULANATE POTASSIUM
  24. AUGMENTIN [Concomitant]
     Active Substance: AMOXICILLIN\CLAVULANATE POTASSIUM

REACTIONS (9)
  - Urinary retention [Unknown]
  - Vision blurred [Unknown]
  - Memory impairment [Unknown]
  - Rib fracture [Unknown]
  - Arthropathy [Unknown]
  - Fall [Unknown]
  - Adverse event [Unknown]
  - Seizure [Unknown]
  - Pyrexia [Unknown]

NARRATIVE: CASE EVENT DATE: 201609
